FAERS Safety Report 17143449 (Version 2)
Quarter: 2019Q4

REPORT INFORMATION
  Report Type: Spontaneous
  Country: DE (occurrence: DE)
  Receive Date: 20191212
  Receipt Date: 20191216
  Transmission Date: 20200122
  Serious: Yes (Hospitalization)
  Sender: FDA-Public Use
  Company Number: DE-MYLANLABS-2019M1120460

PATIENT
  Age: 73 Year
  Sex: Male

DRUGS (17)
  1. APIDRA [Concomitant]
     Active Substance: INSULIN GLULISINE
     Dosage: NK IE, NACH BZ
  2. OLODATEROL [Concomitant]
     Active Substance: OLODATEROL
     Dosage: 2.5 MICROGRAM, QD (2.5 ?G, 1-0-0-0)
  3. VIGANTOL                           /00318501/ [Concomitant]
     Active Substance: CHOLECALCIFEROL
     Dosage: NK MG, 40-0-0-0, TROPFEN
  4. GINKGO                             /01003104/ [Concomitant]
     Dosage: NK MG, NK
  5. NITROFURANTOIN. [Concomitant]
     Active Substance: NITROFURANTOIN
     Dosage: UNK UNK, QD (NK MG, 0-0-1-0)
  6. MOVICOL [Concomitant]
     Active Substance: POLYETHYLENE GLYCOL 3350\POTASSIUM CHLORIDE\SODIUM BICARBONATE\SODIUM CHLORIDE
     Dosage: UNK UNK, QD (NK MG, 1-0-0-0)
  7. TORASEMID [Concomitant]
     Active Substance: TORSEMIDE
     Dosage: 5 MILLIGRAM (5 MG, 2-0-0-0)
  8. IBUPROFEN. [Concomitant]
     Active Substance: IBUPROFEN
     Dosage: 600 MILLIGRAM, QD (600 MG, 0-0-1-0)
  9. TRIMIPRAMIN                        /00051802/ [Suspect]
     Active Substance: TRIMIPRAMINE MALEATE
     Indication: PRODUCT USED FOR UNKNOWN INDICATION
     Dosage: 25 MILLIGRAM (25 MG, 0-0-3-0)
  10. RAMIPRIL. [Concomitant]
     Active Substance: RAMIPRIL
     Dosage: 5 MILLIGRAM, QD (5 MG, 1-0-0-0)
  11. AMLODIPIN                          /00972401/ [Concomitant]
     Active Substance: AMLODIPINE BESYLATE
     Dosage: 5 MILLIGRAM, QD (5 MG, 1-0-0-0)
  12. LANTUS [Concomitant]
     Active Substance: INSULIN GLARGINE
     Dosage: 18 INTERNATIONAL UNIT, QD (18 IE, 1-0-0-0)
  13. FENTANYL. [Suspect]
     Active Substance: FENTANYL
     Indication: PRODUCT USED FOR UNKNOWN INDICATION
     Dosage: 12 ?G/H, 2-0-0-0
  14. GANFORT [Concomitant]
     Active Substance: BIMATOPROST\TIMOLOL
     Dosage: UNK UNK, QD (NK MG, 1-0-0-0)
  15. OMEPRAZOL                          /00661201/ [Concomitant]
     Active Substance: OMEPRAZOLE
     Dosage: 40 MILLIGRAM, BID (40 MG, 1-0-1-0)
  16. ELIQUIS [Concomitant]
     Active Substance: APIXABAN
     Dosage: 2.5 MILLIGRAM, BID (2.5 MG, 1-0-1-0)
  17. MUCOSOLVAN [Concomitant]
     Active Substance: AMBROXOL HYDROCHLORIDE
     Dosage: 10 MILLILITER, BID (10 ML, 1-1-0-0)

REACTIONS (2)
  - Asthenia [Unknown]
  - Memory impairment [Unknown]
